FAERS Safety Report 13568845 (Version 2)
Quarter: 2017Q2

REPORT INFORMATION
  Report Type: Spontaneous
  Country: FR (occurrence: FR)
  Receive Date: 20170522
  Receipt Date: 20170630
  Transmission Date: 20170830
  Serious: Yes (Hospitalization)
  Sender: FDA-Public Use
  Company Number: FR-TEVA-768162ROM

PATIENT
  Age: 15 Year
  Sex: Female

DRUGS (3)
  1. METHOTREXATE TEVA 10 % (5 G/50 ML) [Suspect]
     Active Substance: METHOTREXATE
     Indication: OSTEOSARCOMA
     Route: 041
     Dates: start: 20170216, end: 20170216
  2. METHYLPREDNISOLONE MYLAN 40 MG [Concomitant]
     Active Substance: METHYLPREDNISOLONE
     Dosage: 1 MG/KG DAILY;
  3. METHYLPREDNISOLONE MYLAN 40 MG [Concomitant]
     Active Substance: METHYLPREDNISOLONE
     Indication: OSTEOSARCOMA
     Dosage: 40 MILLIGRAM DAILY;
     Route: 042
     Dates: start: 201702

REACTIONS (3)
  - Eyelid oedema [Recovered/Resolved]
  - Nasal congestion [Recovered/Resolved]
  - Chest discomfort [Recovered/Resolved]

NARRATIVE: CASE EVENT DATE: 20170216
